FAERS Safety Report 7007689-1 (Version None)
Quarter: 2010Q3

REPORT INFORMATION
  Report Type: 
  Country: None (occurrence: None)
  Receive Date: 20100922
  Receipt Date: 20100920
  Transmission Date: 20110219
  Serious: Yes (Life-Threatening)
  Sender: FDA-Public Use
  Company Number: DE-GENZYME-THYM-1001494

PATIENT
  Sex: Female

DRUGS (11)
  1. THYMOGLOBULIN [Suspect]
     Indication: PROPHYLAXIS AGAINST TRANSPLANT REJECTION
     Dosage: 75 MG, QD
     Route: 042
     Dates: start: 20100422, end: 20100422
  2. THIOPENTAL SODIUM [Concomitant]
     Indication: SURGERY
     Dosage: 300 MG, UNK
     Dates: start: 20100422, end: 20100422
  3. THIOPENTAL SODIUM [Concomitant]
     Indication: ANAESTHESIA
  4. ROCURONIUM BROMIDE [Concomitant]
     Indication: SURGERY
     Dosage: 50 MG, UNK
     Dates: start: 20100422, end: 20100422
  5. ROCURONIUM BROMIDE [Concomitant]
     Indication: ANAESTHESIA
  6. FENTANYL CITRATE [Concomitant]
     Indication: SURGERY
     Dosage: 0.2 MG, UNK
     Dates: start: 20100422, end: 20100422
  7. FENTANYL CITRATE [Concomitant]
     Indication: ANAESTHESIA
  8. AMPICILLIN AND SULBACTAM [Concomitant]
     Indication: SURGERY
     Dosage: 1.5 G, UNK
     Dates: start: 20100422, end: 20100422
  9. AMPICILLIN AND SULBACTAM [Concomitant]
     Indication: ANAESTHESIA
  10. PREDNISOLONE [Concomitant]
     Indication: SURGERY
     Dosage: 250 MG, UNK
     Dates: start: 20100422, end: 20100422
  11. PREDNISOLONE [Concomitant]
     Indication: ANAESTHESIA

REACTIONS (2)
  - CYTOKINE RELEASE SYNDROME [None]
  - MEDICATION ERROR [None]
